FAERS Safety Report 20479467 (Version 1)
Quarter: 2022Q1

REPORT INFORMATION
  Report Type: Report from Study
  Country: US (occurrence: US)
  Receive Date: 20220216
  Receipt Date: 20220216
  Transmission Date: 20220423
  Serious: Yes (Death, Other)
  Sender: FDA-Public Use
  Company Number: None

PATIENT
  Sex: Female

DRUGS (3)
  1. ARIKAYCE [Suspect]
     Active Substance: AMIKACIN
     Indication: Mycobacterial infection
     Dosage: 590 MILLIGRAM, QD
     Route: 055
     Dates: start: 201906, end: 2020
  2. ARIKAYCE [Suspect]
     Active Substance: AMIKACIN
     Dosage: 590 MILLIGRAM, QD
     Route: 055
     Dates: start: 2020, end: 202102
  3. ARIKAYCE [Suspect]
     Active Substance: AMIKACIN
     Dosage: 590 MILLIGRAM
     Route: 055
     Dates: start: 2021

REACTIONS (24)
  - Death [Fatal]
  - Swelling [Unknown]
  - Dyspnoea exertional [Not Recovered/Not Resolved]
  - Confusional state [Not Recovered/Not Resolved]
  - Heart rate increased [Unknown]
  - Dysphagia [Unknown]
  - Rash vesicular [Unknown]
  - Peripheral swelling [Recovered/Resolved]
  - Head injury [Recovered/Resolved]
  - Fall [Unknown]
  - Herpes zoster [Unknown]
  - Mastication disorder [Unknown]
  - Palpitations [Unknown]
  - Sputum discoloured [Unknown]
  - Back pain [Unknown]
  - Weight decreased [Not Recovered/Not Resolved]
  - Productive cough [Unknown]
  - Weight decreased [Unknown]
  - Cough [Unknown]
  - Dysphonia [Unknown]
  - Haemoptysis [Recovered/Resolved]
  - Haemoptysis [Unknown]
  - Dyspnoea [Unknown]
  - Therapy interrupted [Unknown]

NARRATIVE: CASE EVENT DATE: 20190101
